FAERS Safety Report 5034340-2 (Version None)
Quarter: 2006Q2

REPORT INFORMATION
  Report Type: 
  Country: None (occurrence: None)
  Receive Date: 20060626
  Receipt Date: 20060331
  Transmission Date: 20061013
  Serious: Yes (Other)
  Sender: FDA-Public Use
  Company Number: JP-ROCHE-442515

PATIENT
  Age: 29 Year
  Sex: Female

DRUGS (1)
  1. GANCICLOVIR [Suspect]
     Route: 042

REACTIONS (1)
  - HERPES ZOSTER [None]
